FAERS Safety Report 5466063-X (Version None)
Quarter: 2007Q3

REPORT INFORMATION
  Report Type: 
  Country: None (occurrence: None)
  Receive Date: 20070919
  Receipt Date: 20070911
  Transmission Date: 20080115
  Serious: Yes (Congenital Anomaly, Other)
  Sender: FDA-Public Use
  Company Number: 083-20785-07090526

PATIENT
  Sex: 0

DRUGS (1)
  1. THALOMID [Suspect]
     Indication: DRUG USE FOR UNKNOWN INDICATION
     Dosage: ORAL
     Route: 048

REACTIONS (10)
  - AINHUM [None]
  - CONGENITAL HAND MALFORMATION [None]
  - DRUG EXPOSURE DURING PREGNANCY [None]
  - FOETAL DISORDER [None]
  - MALFORMATION VENOUS [None]
  - PHALANGEAL AGENESIS [None]
  - SKIN ULCER [None]
  - SYNDACTYLY [None]
  - TERATOGENICITY [None]
  - VENOUS PRESSURE INCREASED [None]
